FAERS Safety Report 14606017 (Version 1)
Quarter: 2018Q1

REPORT INFORMATION
  Report Type: Spontaneous
  Country: US (occurrence: US)
  Receive Date: 20180307
  Receipt Date: 20180307
  Transmission Date: 20180509
  Serious: No
  Sender: FDA-Public Use
  Company Number: US-009507513-1803USA002470

PATIENT
  Sex: Female
  Weight: 65.76 kg

DRUGS (1)
  1. NEXPLANON [Suspect]
     Active Substance: ETONOGESTREL
     Indication: CONTRACEPTION
     Dosage: 1 IMPLANT IN LEFT ARM, EVERY 3 YEARS
     Route: 059

REACTIONS (5)
  - Movement disorder [Unknown]
  - Skin discolouration [Unknown]
  - Peripheral swelling [Unknown]
  - Contusion [Unknown]
  - Limb discomfort [Unknown]
